FAERS Safety Report 12483501 (Version 5)
Quarter: 2017Q3

REPORT INFORMATION
  Report Type: Report from Study
  Country: JP (occurrence: JP)
  Receive Date: 20160621
  Receipt Date: 20170806
  Transmission Date: 20171127
  Serious: Yes (Death, Disabling)
  Sender: FDA-Public Use
  Company Number: JP-AMGEN-JPNCT2015104263

PATIENT
  Age: 71 Year
  Sex: Female
  Weight: 56 kg

DRUGS (20)
  1. VFEND [Concomitant]
     Active Substance: VORICONAZOLE
     Indication: FEBRILE NEUTROPENIA
     Dosage: 400 MG, UNK
     Route: 048
     Dates: start: 20150414, end: 20150415
  2. PRIMOBOLAN-DEPOT [Concomitant]
     Active Substance: METHENOLONE ENANTHATE
     Indication: MYELODYSPLASTIC SYNDROME
     Dosage: 20 MG, UNK
     Route: 048
     Dates: end: 20150918
  3. NEORAL [Concomitant]
     Active Substance: CYCLOSPORINE
     Indication: MYELODYSPLASTIC SYNDROME
     Dosage: 100 MG, UNK
     Route: 048
     Dates: end: 20150410
  4. NAIXAN [Concomitant]
     Active Substance: NAPROXEN SODIUM
     Dosage: 100 MG, UNK
     Route: 048
     Dates: start: 2015
  5. MAXIPIME [Concomitant]
     Active Substance: CEFEPIME HYDROCHLORIDE
     Indication: FEBRILE NEUTROPENIA
     Dosage: 4 G, AS NECESSARY
     Route: 042
     Dates: start: 20150410, end: 2015
  6. MEROPEN [Concomitant]
     Active Substance: MEROPENEM
     Indication: FEBRILE NEUTROPENIA
     Dosage: 2 G, AS NECESSARY
     Route: 041
     Dates: start: 20150412
  7. CRAVIT [Concomitant]
     Active Substance: LEVOFLOXACIN
     Indication: FEBRILE NEUTROPENIA
     Dosage: 500 MG, UNK
     Route: 048
     Dates: start: 20150416, end: 20150425
  8. LENDORMIN [Concomitant]
     Active Substance: BROTIZOLAM
     Dosage: 0.125 MG, UNK
     Route: 048
     Dates: start: 20150709, end: 20150918
  9. PREDONINE [Concomitant]
     Active Substance: PREDNISOLONE
     Indication: ORGANISING PNEUMONIA
     Dosage: 40 TO 60 MG, UNK
     Route: 048
     Dates: start: 20150730
  10. BACTRAMIN [Concomitant]
     Active Substance: SULFAMETHOXAZOLE\TRIMETHOPRIM
     Dosage: 2 DF, UNK
     Route: 048
     Dates: end: 20150918
  11. NEXIUM [Concomitant]
     Active Substance: ESOMEPRAZOLE MAGNESIUM
     Dosage: 20 MG, UNK
     Route: 048
     Dates: start: 20150528
  12. AMBISOME [Concomitant]
     Active Substance: AMPHOTERICIN B
     Indication: FEBRILE NEUTROPENIA
     Dosage: 200 MG, AS NECESSARY
     Route: 041
     Dates: start: 20150416
  13. CIRCANETTEN [Concomitant]
     Active Substance: KERATIN\SENNA LEAF
     Indication: HAEMORRHOIDS
     Dosage: 6 DF, UNK
     Route: 048
     Dates: start: 20150821, end: 20150918
  14. LASTET S [Concomitant]
     Active Substance: ETOPOSIDE
     Indication: MYELODYSPLASTIC SYNDROME
     Dosage: 50 MG, UNK
     Route: 048
     Dates: start: 20150812, end: 20150818
  15. VANCOMYCIN [Concomitant]
     Active Substance: VANCOMYCIN
     Indication: FEBRILE NEUTROPENIA
     Dosage: 0.5 TO 1 MG, AS NECESSARY
     Route: 041
     Dates: start: 20150412
  16. DARBEPOETIN ALFA [Suspect]
     Active Substance: DARBEPOETIN ALFA
     Indication: MYELODYSPLASTIC SYNDROME
     Dosage: 240 MUG, QWK
     Route: 058
     Dates: start: 20150123, end: 20150807
  17. ALOSITOL [Concomitant]
     Active Substance: ALLOPURINOL
     Indication: HYPERURICAEMIA
     Dosage: 200 MG, UNK
     Route: 048
     Dates: end: 20150709
  18. STARASID [Concomitant]
     Active Substance: CYTARABINE OCFOSFATE
     Indication: MYELODYSPLASTIC SYNDROME
     Dosage: 300 MG, UNK
     Route: 048
     Dates: start: 20150812, end: 20150818
  19. DIFLUCAN [Concomitant]
     Active Substance: FLUCONAZOLE
     Dosage: 200 MG, UNK
     Route: 048
     Dates: start: 20150806, end: 20150918
  20. GRAN [Concomitant]
     Active Substance: FILGRASTIM
     Indication: MYELODYSPLASTIC SYNDROME
     Dosage: 75 MUG, AS NECESSARY
     Route: 065
     Dates: start: 20150513, end: 20150918

REACTIONS (2)
  - Organising pneumonia [Recovering/Resolving]
  - Disease progression [Fatal]

NARRATIVE: CASE EVENT DATE: 20150806
